FAERS Safety Report 7484300-7 (Version None)
Quarter: 2011Q2

REPORT INFORMATION
  Report Type: 
  Country: None (occurrence: None)
  Receive Date: 20110513
  Receipt Date: 20110513
  Transmission Date: 20111010
  Serious: Yes (Other)
  Sender: FDA-Public Use
  Company Number: None

PATIENT
  Age: 38 Year
  Sex: Female
  Weight: 59.8748 kg

DRUGS (1)
  1. AMPHETAMINE SULFATE [Suspect]
     Indication: ATTENTION DEFICIT/HYPERACTIVITY DISORDER
     Dosage: 1 CAPSULE QD PO THIS MONTH
     Route: 048
     Dates: start: 20110421, end: 20110512

REACTIONS (4)
  - MUSCLE TIGHTNESS [None]
  - VEIN DISORDER [None]
  - PRODUCT SUBSTITUTION ISSUE [None]
  - HEADACHE [None]
